FAERS Safety Report 4878853-2 (Version None)
Quarter: 2006Q1

REPORT INFORMATION
  Report Type: 
  Country: None (occurrence: None)
  Receive Date: 20060112
  Receipt Date: 20060108
  Transmission Date: 20060701
  Serious: Yes (Hospitalization)
  Sender: FDA-Public Use
  Company Number: 2006000436

PATIENT
  Age: 45 Year
  Sex: Female
  Weight: 55 kg

DRUGS (6)
  1. IMIGRAN [Suspect]
     Route: 048
  2. CLINICAL STUDY MEDICATION [Suspect]
     Route: 048
  3. KATADOLON [Suspect]
     Route: 048
  4. LYRICA [Suspect]
     Indication: EPILEPSY
     Route: 048
  5. OXYCODON [Suspect]
     Route: 048
  6. TOPAMAX [Suspect]
     Route: 048

REACTIONS (3)
  - CONFUSIONAL STATE [None]
  - PNEUMONIA [None]
  - SOMNOLENCE [None]
